FAERS Safety Report 12344915 (Version 2)
Quarter: 2016Q4

REPORT INFORMATION
  Report Type: Spontaneous
  Country: US (occurrence: US)
  Receive Date: 20160507
  Receipt Date: 20161221
  Transmission Date: 20170207
  Serious: Yes (Hospitalization)
  Sender: FDA-Public Use
  Company Number: US-JNJFOC-20160417099

PATIENT
  Age: 75 Year
  Sex: Female
  Weight: 92.8 kg

DRUGS (4)
  1. XARELTO [Suspect]
     Active Substance: RIVAROXABAN
     Indication: CEREBROVASCULAR ACCIDENT PROPHYLAXIS
     Route: 048
     Dates: start: 20150323, end: 20150418
  2. ASPIRIN. [Suspect]
     Active Substance: ASPIRIN
     Indication: ANTICOAGULANT THERAPY
     Route: 048
     Dates: end: 201504
  3. XARELTO [Suspect]
     Active Substance: RIVAROXABAN
     Indication: ATRIAL FIBRILLATION
     Route: 048
     Dates: start: 20150323, end: 20150418
  4. XARELTO [Suspect]
     Active Substance: RIVAROXABAN
     Indication: THROMBOSIS PROPHYLAXIS
     Route: 048
     Dates: start: 20150323, end: 20150418

REACTIONS (4)
  - Upper gastrointestinal haemorrhage [Recovering/Resolving]
  - Coagulopathy [Unknown]
  - Renal failure [Recovering/Resolving]
  - Dieulafoy^s vascular malformation [Recovering/Resolving]

NARRATIVE: CASE EVENT DATE: 2015
